FAERS Safety Report 17130164 (Version 1)
Quarter: 2019Q4

REPORT INFORMATION
  Report Type: Spontaneous
  Country: JP (occurrence: JP)
  Receive Date: 20191209
  Receipt Date: 20191209
  Transmission Date: 20200122
  Serious: Yes (Other)
  Sender: FDA-Public Use
  Company Number: JP-PFIZER INC-2019525291

PATIENT
  Age: 9 Decade
  Sex: Male

DRUGS (1)
  1. HALCION [Suspect]
     Active Substance: TRIAZOLAM
     Indication: SLEEP DISORDER
     Dosage: 2 DF, DAILY
     Route: 048

REACTIONS (2)
  - Intentional product use issue [Unknown]
  - Interstitial lung disease [Unknown]
